FAERS Safety Report 7971190-9 (Version None)
Quarter: 2011Q4

REPORT INFORMATION
  Report Type: 
  Country: None (occurrence: None)
  Receive Date: 20111212
  Receipt Date: 20111206
  Transmission Date: 20120403
  Serious: Yes (Hospitalization)
  Sender: FDA-Public Use
  Company Number: US-BAYER-2011-117990

PATIENT
  Age: 18 Month
  Sex: Male

DRUGS (1)
  1. ACETYLSALICYLIC ACID SRT [Suspect]
     Route: 048

REACTIONS (6)
  - TOXICITY TO VARIOUS AGENTS [None]
  - VOMITING [None]
  - METABOLIC ACIDOSIS [None]
  - ATAXIA [None]
  - RESPIRATORY DISTRESS [None]
  - RESPIRATORY ALKALOSIS [None]
